FAERS Safety Report 6999699-5 (Version None)
Quarter: 2010Q3

REPORT INFORMATION
  Report Type: 
  Country: None (occurrence: None)
  Receive Date: 20100920
  Receipt Date: 20071003
  Transmission Date: 20110219
  Serious: Yes (Other)
  Sender: FDA-Public Use
  Company Number: US-ASTRAZENECA-2006UW23036

PATIENT
  Age: 52 Year
  Sex: Female
  Weight: 70.8 kg

DRUGS (24)
  1. SEROQUEL [Suspect]
     Indication: HALLUCINATION
     Route: 048
     Dates: start: 19990101, end: 20030101
  2. SEROQUEL [Suspect]
     Indication: PARANOIA
     Route: 048
     Dates: start: 19990101, end: 20030101
  3. SEROQUEL [Suspect]
     Indication: BIPOLAR DISORDER
     Route: 048
     Dates: start: 19990101, end: 20030101
  4. SEROQUEL [Suspect]
     Indication: DEPRESSION
     Route: 048
     Dates: start: 19990101, end: 20030101
  5. SEROQUEL [Suspect]
     Indication: HALLUCINATION, AUDITORY
     Route: 048
     Dates: start: 19990101, end: 20030101
  6. SEROQUEL [Suspect]
     Route: 048
     Dates: start: 20010101, end: 20030101
  7. SEROQUEL [Suspect]
     Route: 048
     Dates: start: 20010101, end: 20030101
  8. SEROQUEL [Suspect]
     Route: 048
     Dates: start: 20010101, end: 20030101
  9. SEROQUEL [Suspect]
     Route: 048
     Dates: start: 20010101, end: 20030101
  10. SEROQUEL [Suspect]
     Route: 048
     Dates: start: 20010101, end: 20030101
  11. SEROQUEL [Suspect]
     Dosage: 300-600 MG
     Route: 048
     Dates: start: 20020226
  12. SEROQUEL [Suspect]
     Dosage: 300-600 MG
     Route: 048
     Dates: start: 20020226
  13. SEROQUEL [Suspect]
     Dosage: 300-600 MG
     Route: 048
     Dates: start: 20020226
  14. SEROQUEL [Suspect]
     Dosage: 300-600 MG
     Route: 048
     Dates: start: 20020226
  15. SEROQUEL [Suspect]
     Dosage: 300-600 MG
     Route: 048
     Dates: start: 20020226
  16. ABILIFY [Concomitant]
  17. THORAZINE [Concomitant]
  18. PROZAC [Concomitant]
  19. ASPIRIN [Concomitant]
     Dates: start: 20010220
  20. COMBIVENT [Concomitant]
     Dosage: 2 PUFFS QID
     Dates: start: 20010220
  21. COZAAR [Concomitant]
     Route: 048
     Dates: start: 20010220
  22. LITHIUM CARBONATE [Concomitant]
     Dosage: 1200-1500 MG
     Dates: start: 20011116
  23. DEPAKOTE [Concomitant]
     Dates: start: 20010101, end: 20010101
  24. DEPAKOTE [Concomitant]
     Route: 048
     Dates: start: 20011116

REACTIONS (4)
  - DIABETES MELLITUS [None]
  - HYPERGLYCAEMIA [None]
  - TYPE 1 DIABETES MELLITUS [None]
  - TYPE 2 DIABETES MELLITUS [None]
